FAERS Safety Report 12936749 (Version 3)
Quarter: 2016Q4

REPORT INFORMATION
  Report Type: Spontaneous
  Country: US (occurrence: US)
  Receive Date: 20161114
  Receipt Date: 20161205
  Transmission Date: 20170207
  Serious: Yes (Other)
  Sender: FDA-Public Use
  Company Number: US-PFIZER INC-2016526025

PATIENT
  Age: 35 Year
  Sex: Male

DRUGS (2)
  1. EPINEPHRINE. [Suspect]
     Active Substance: EPINEPHRINE
     Dosage: UNK
  2. SODIUM METABISULFITE [Suspect]
     Active Substance: SODIUM METABISULFITE
     Dosage: UNK

REACTIONS (2)
  - Reaction to preservatives [Recovered/Resolved]
  - Drug-induced liver injury [Recovered/Resolved]
